FAERS Safety Report 18083877 (Version 2)
Quarter: 2020Q3

REPORT INFORMATION
  Report Type: Report from Study
  Country: IL (occurrence: IL)
  Receive Date: 20200728
  Receipt Date: 20200810
  Transmission Date: 20201103
  Serious: Yes (Hospitalization)
  Sender: FDA-Public Use
  Company Number: IL-ROCHE-2644536

PATIENT
  Age: 50 Year
  Sex: Female
  Weight: 55.8 kg

DRUGS (7)
  1. CLEXANE [Concomitant]
     Active Substance: ENOXAPARIN SODIUM
     Indication: DEEP VEIN THROMBOSIS
     Dates: start: 201811
  2. FENTANYL. [Concomitant]
     Active Substance: FENTANYL
     Indication: PAIN
     Dates: start: 201910
  3. AZENIL [Concomitant]
     Indication: SYNCOPE
     Dates: start: 20200608
  4. ATEZOLIZUMAB. [Suspect]
     Active Substance: ATEZOLIZUMAB
     Indication: NEOPLASM
     Dosage: ON 22/JUN/2020 AT 12:45, HE RECEIVED MOST RECENT DOSE OF ATEZOLIZUMAB 1200 MG.?ON 14/JUL/2020 AT 12:
     Route: 041
     Dates: start: 20200602
  5. RO6874281 (FAP IL2V MAB) [Suspect]
     Active Substance: SIMLUKAFUSP ALFA
     Indication: NEOPLASM
     Dosage: ON 22/JUN/2020 AT 02:15, HE RECEIVED MOST RECENT DOSE OF RO6874281 (FAP IL2V MAB) 10 MG.?ON 14/JUL/2
     Route: 042
     Dates: start: 20200602
  6. PARACETAMOL [Concomitant]
     Active Substance: ACETAMINOPHEN
     Indication: INFLUENZA LIKE ILLNESS
     Dates: start: 20200622, end: 20200623
  7. CANNABIS [Concomitant]
     Active Substance: CANNABIS SATIVA SUBSP. INDICA TOP
     Indication: PAIN
     Dates: start: 201912

REACTIONS (1)
  - Influenza like illness [Recovered/Resolved]

NARRATIVE: CASE EVENT DATE: 20200714
